FAERS Safety Report 12079328 (Version 1)
Quarter: 2016Q1

REPORT INFORMATION
  Report Type: Spontaneous
  Country: US (occurrence: None)
  Receive Date: 20160212
  Receipt Date: 20160212
  Transmission Date: 20160526
  Serious: Yes (Life-Threatening)
  Sender: FDA-Public Use
  Company Number: None

PATIENT
  Age: 68 Year
  Sex: Male
  Weight: 68.04 kg

DRUGS (1)
  1. GLOBULIN,IMMUNE [Suspect]
     Active Substance: HUMAN IMMUNOGLOBULIN G
     Route: 042

REACTIONS (10)
  - Hypertension [None]
  - Feeling hot [None]
  - Flushing [None]
  - Irritability [None]
  - Dyspnoea [None]
  - Chest discomfort [None]
  - Anaphylactic reaction [None]
  - Wheezing [None]
  - Tachycardia [None]
  - Cough [None]

NARRATIVE: CASE EVENT DATE: 20151113
